FAERS Safety Report 9178174 (Version 4)
Quarter: 2013Q3

REPORT INFORMATION
  Report Type: Spontaneous
  Country: US (occurrence: US)
  Receive Date: 20130321
  Receipt Date: 20130723
  Transmission Date: 20140515
  Serious: Yes (Hospitalization)
  Sender: FDA-Public Use
  Company Number: US-ELI_LILLY_AND_COMPANY-US201303005160

PATIENT
  Sex: Male

DRUGS (15)
  1. EFFIENT [Suspect]
     Dosage: 10 MG, QD
     Dates: start: 20101020
  2. LANTUS [Concomitant]
     Dosage: 45 U, BID
     Dates: start: 20090122
  3. NITROGLYCERIN [Concomitant]
     Dosage: 0.4 MG, PRN
     Dates: start: 20090122
  4. PEPCID [Concomitant]
     Dosage: 20 MG, QD
     Dates: start: 20091223, end: 20110607
  5. NORVASC [Concomitant]
     Dosage: 10 MG, QD
     Dates: start: 20100428
  6. LIPITOR [Concomitant]
     Dosage: 40 MG, QD
     Dates: start: 20100428
  7. CARVEDILOL [Concomitant]
     Dosage: 25 MG, BID
  8. HYDROCHLOORTHIAZIDE [Concomitant]
     Dosage: 25 MG, QD
     Dates: start: 20100424
  9. LISINOPRIL [Concomitant]
     Dosage: 40 MG, QD
     Dates: start: 20090224
  10. PROTONIX [Concomitant]
     Dosage: UNK
     Route: 042
     Dates: start: 20110607, end: 20121101
  11. PROTONIX [Concomitant]
     Dosage: UNK
     Route: 042
     Dates: start: 20130207, end: 20130208
  12. PROTONIX [Concomitant]
     Dosage: 40 MG, QD
     Dates: end: 20130305
  13. NOVOLIN [Concomitant]
     Dosage: 100 U, PRN
     Dates: start: 20100824
  14. EPLERENONE [Concomitant]
     Dosage: 50 MG, QD
     Dates: start: 20100824
  15. ASPIRIN [Concomitant]
     Dosage: 81 MG, QD
     Dates: start: 20090122

REACTIONS (7)
  - Impaired gastric emptying [Recovered/Resolved]
  - Impaired gastric emptying [Recovered/Resolved]
  - Impaired gastric emptying [Recovered/Resolved]
  - Gastrointestinal haemorrhage [Unknown]
  - Dehydration [Recovered/Resolved]
  - Cholelithiasis [Unknown]
  - Pulmonary mass [Unknown]
